FAERS Safety Report 9253931 (Version 1)
Quarter: 2013Q2

REPORT INFORMATION
  Report Type: Spontaneous
  Country: IT (occurrence: IT)
  Receive Date: 20130425
  Receipt Date: 20130425
  Transmission Date: 20140414
  Serious: Yes (Hospitalization)
  Sender: FDA-Public Use
  Company Number: IT-TEVA-399004ISR

PATIENT
  Age: 65 Year
  Sex: Male

DRUGS (3)
  1. CARBOLITHIUM [Suspect]
     Dosage: 50 DOSAGE FORMS DAILY; 150MG, RIGID CAPSULES
     Route: 048
     Dates: start: 20121009, end: 20121009
  2. ABILIFY [Concomitant]
     Indication: BIPOLAR DISORDER
     Dosage: 5 MILLIGRAM DAILY;
     Route: 048
  3. SEROQUEL [Concomitant]
     Dosage: 25 MILLIGRAM DAILY;
     Route: 048

REACTIONS (1)
  - Suicide attempt [Recovered/Resolved]
